FAERS Safety Report 23941177 (Version 1)
Quarter: 2024Q2

REPORT INFORMATION
  Report Type: Spontaneous
  Country: CA (occurrence: CA)
  Receive Date: 20240605
  Receipt Date: 20240605
  Transmission Date: 20240716
  Serious: No
  Sender: FDA-Public Use
  Company Number: CA-PFIZER INC-202400181695

PATIENT
  Sex: Female

DRUGS (2)
  1. ESTRING [Suspect]
     Active Substance: ESTRADIOL
     Dosage: UNK
     Route: 067
     Dates: start: 202301
  2. ESTRADIOL [Concomitant]
     Active Substance: ESTRADIOL
     Dosage: UNK

REACTIONS (4)
  - Vulvovaginal discomfort [Recovered/Resolved]
  - Atrophic vulvovaginitis [Recovered/Resolved]
  - Device colour issue [Unknown]
  - Device issue [Unknown]
